FAERS Safety Report 24854439 (Version 1)
Quarter: 2025Q1

REPORT INFORMATION
  Report Type: Spontaneous
  Country: US (occurrence: US)
  Receive Date: 20250117
  Receipt Date: 20250117
  Transmission Date: 20250408
  Serious: Yes (Other)
  Sender: PAREXEL
  Company Number: US-MARIUS PHARMACEUTICALS, LLC-2025US000103

PATIENT

DRUGS (1)
  1. KYZATREX [Suspect]
     Active Substance: TESTOSTERONE UNDECANOATE
     Indication: Primary hypogonadism
     Dosage: 150 MG, TWICE DAILY
     Route: 048
     Dates: start: 20241217, end: 20241224

REACTIONS (2)
  - Lymphadenopathy [Recovered/Resolved]
  - Condition aggravated [Recovered/Resolved]

NARRATIVE: CASE EVENT DATE: 20241201
